FAERS Safety Report 5947422-5 (Version None)
Quarter: 2008Q4

REPORT INFORMATION
  Report Type: 
  Country: None (occurrence: None)
  Receive Date: 20081110
  Receipt Date: 20081105
  Transmission Date: 20090506
  Serious: Yes (Death)
  Sender: FDA-Public Use
  Company Number: IN-PFIZER INC-2008093911

PATIENT
  Sex: Female
  Weight: 78 kg

DRUGS (10)
  1. IRINOTECAN HCL [Suspect]
     Indication: COLORECTAL CANCER METASTATIC
     Route: 042
     Dates: start: 20080804
  2. BLINDED SU11248 (SU011248) [Suspect]
     Indication: COLORECTAL CANCER METASTATIC
     Route: 048
     Dates: start: 20080804
  3. LEUCOVORIN CALCIUM [Suspect]
     Indication: COLORECTAL CANCER METASTATIC
     Route: 042
     Dates: start: 20080804
  4. FLUOROURACIL [Suspect]
     Indication: COLORECTAL CANCER METASTATIC
     Route: 042
     Dates: start: 20080804
  5. NORFLOXACIN [Concomitant]
     Route: 048
     Dates: start: 20081003, end: 20081008
  6. MULTI-VITAMINS [Concomitant]
     Route: 048
     Dates: start: 20081003, end: 20081008
  7. DISODIUM HYDROGEN CITRATE [Concomitant]
     Route: 048
     Dates: start: 20081003, end: 20081008
  8. PANTOPRAZOLE SODIUM [Concomitant]
     Route: 048
     Dates: start: 20080804
  9. MAGNESIUM OXIDE [Concomitant]
     Route: 048
     Dates: start: 20080804
  10. CODEINE PHOSPHATE [Concomitant]
     Route: 048
     Dates: start: 20081101

REACTIONS (1)
  - DEATH [None]
